FAERS Safety Report 5290623-2 (Version None)
Quarter: 2007Q2

REPORT INFORMATION
  Report Type: 
  Country: None (occurrence: None)
  Receive Date: 20070409
  Receipt Date: 20070404
  Transmission Date: 20071010
  Serious: Yes (Life-Threatening, Other)
  Sender: FDA-Public Use
  Company Number: DE-BRISTOL-MYERS SQUIBB COMPANY-13740147

PATIENT
  Age: 48 Year
  Sex: Female

DRUGS (8)
  1. TAXOL [Suspect]
     Indication: BREAST CANCER METASTATIC
  2. AVASTIN [Suspect]
     Indication: BREAST CANCER METASTATIC
  3. BONDRONAT [Concomitant]
     Route: 042
  4. PENTOXIFYLLINE [Concomitant]
  5. MIRTAZAPINE [Concomitant]
     Route: 042
  6. CELEBREX [Concomitant]
     Route: 048
  7. OMEPRAZOLE [Concomitant]
     Route: 048
  8. HYDROMORPHONE HCL [Concomitant]
     Route: 048

REACTIONS (4)
  - GASTROINTESTINAL NECROSIS [None]
  - LARGE INTESTINE PERFORATION [None]
  - PERITONITIS [None]
  - SEPSIS [None]
